FAERS Safety Report 6684077-9 (Version None)
Quarter: 2010Q2

REPORT INFORMATION
  Report Type: 
  Country: None (occurrence: None)
  Receive Date: 20100416
  Receipt Date: 20100402
  Transmission Date: 20101027
  Serious: Yes (Hospitalization, Other)
  Sender: FDA-Public Use
  Company Number: PHHY2010KR21654

PATIENT
  Age: 23 Year
  Sex: Female

DRUGS (5)
  1. CYCLOSPORINE [Suspect]
     Indication: ASPERGILLOSIS
     Dosage: 25 MG, BID
  2. VORICONAZOLE [Concomitant]
  3. MYCOPHENOLATE MOFETIL [Concomitant]
  4. STEROIDS NOS [Concomitant]
  5. BASILIXIMAB [Concomitant]

REACTIONS (3)
  - ASPERGILLOSIS [None]
  - COUGH [None]
  - NODULE [None]
